FAERS Safety Report 7197793-X (Version None)
Quarter: 2010Q4

REPORT INFORMATION
  Report Type: 
  Country: None (occurrence: None)
  Receive Date: 20101208
  Receipt Date: 20101202
  Transmission Date: 20110411
  Serious: Yes (Hospitalization, Other)
  Sender: FDA-Public Use
  Company Number: 2008-182154-NL

PATIENT
  Age: 46 Year
  Sex: Female
  Weight: 63.5 kg

DRUGS (7)
  1. NUVARING [Suspect]
     Indication: CONTRACEPTION
     Dosage: VAG
     Route: 067
     Dates: start: 20040101, end: 20070325
  2. PRASTERONE [Suspect]
     Indication: PRODUCT USED FOR UNKNOWN INDICATION
  3. B-COMPLEX + VITAMIN C [Concomitant]
  4. ADVIL [Concomitant]
  5. LAMISIL [Concomitant]
  6. TESTOSTERONE [Concomitant]
  7. SUDAFED 12 HOUR [Concomitant]

REACTIONS (16)
  - CONVULSION [None]
  - DEPRESSED LEVEL OF CONSCIOUSNESS [None]
  - DISORIENTATION [None]
  - DIZZINESS [None]
  - HEADACHE [None]
  - HYPERHIDROSIS [None]
  - INFARCTION [None]
  - INTESTINAL POLYP [None]
  - NAUSEA [None]
  - PARAESTHESIA [None]
  - ROTATOR CUFF SYNDROME [None]
  - SUBARACHNOID HAEMORRHAGE [None]
  - TACHYCARDIA [None]
  - TRANSVERSE SINUS THROMBOSIS [None]
  - VENOUS HAEMORRHAGE [None]
  - WEIGHT INCREASED [None]
